FAERS Safety Report 11529288 (Version 3)
Quarter: 2015Q4

REPORT INFORMATION
  Report Type: Not Available
  Country: GB (occurrence: GB)
  Receive Date: 20150921
  Receipt Date: 20151221
  Transmission Date: 20160304
  Serious: Yes (Other)
  Sender: FDA-Public Use
  Company Number: GB-BEH-2015053940

PATIENT
  Sex: Male

DRUGS (2)
  1. ANTIHAEMOPHILIC FACTOR / FACTOR VIII [Suspect]
     Active Substance: ANTIHEMOPHILIC FACTOR HUMAN
     Indication: HAEMOPHILIA
     Dosage: UNSPECIFIED DATE, BATCH NO, DOSE AND FREQUENCY: UNKNOWN
  2. ANTIHAEMOPHILIC FACTOR / FACTOR VIII [Suspect]
     Active Substance: ANTIHEMOPHILIC FACTOR HUMAN
     Indication: JOINT SWELLING
     Dosage: UNSPECIFIED DATE, BATCH NO, DOSE AND FREQUENCY: UNKNOWN

REACTIONS (6)
  - Mental disorder [Unknown]
  - Chronic hepatitis C [Unknown]
  - Drug prescribing error [Unknown]
  - Injury [Unknown]
  - Suspected transmission of an infectious agent via product [Unknown]
  - Suicide attempt [Unknown]
